FAERS Safety Report 6967356-7 (Version None)
Quarter: 2010Q3

REPORT INFORMATION
  Report Type: 
  Country: None (occurrence: None)
  Receive Date: 20100901
  Receipt Date: 20100819
  Transmission Date: 20110219
  Serious: Yes (Death, Hospitalization)
  Sender: FDA-Public Use
  Company Number: 2010AL002302

PATIENT
  Age: 86 Year
  Sex: Male

DRUGS (21)
  1. ACETAMINOPHEN AND CODEINE PHOSPHATE [Suspect]
     Indication: PAIN
     Dosage: 2 DF;QD;PO
     Route: 048
     Dates: start: 20091013, end: 20091018
  2. FEVERALL [Suspect]
     Indication: PAIN
     Dosage: 1 GM;QD;PO
     Route: 048
     Dates: start: 20091019, end: 20091019
  3. PENICILLIN G [Concomitant]
  4. DIGOXIN [Concomitant]
  5. SPIRONOLACTONE [Concomitant]
  6. BUMETANIDE [Concomitant]
  7. NULYTELY [Concomitant]
  8. BISOPROLOL [Concomitant]
  9. OMEPRAZOLE [Concomitant]
  10. SIMVASTATIN [Concomitant]
  11. RAMIPRIL [Concomitant]
  12. PABRINEX [Concomitant]
  13. VITAMIN B COMPOUND STRONG [Concomitant]
  14. ASCORBIC ACID [Concomitant]
  15. CHLORDIAZEPOXIDE [Concomitant]
  16. METRONIDAZOLE [Concomitant]
  17. CYCLIZINE [Concomitant]
  18. ONDANSETRON [Concomitant]
  19. CODEINE [Concomitant]
  20. ASCORBIC [Concomitant]
  21. PREV MEDS [Concomitant]

REACTIONS (18)
  - ACIDOSIS [None]
  - ACUTE HEPATIC FAILURE [None]
  - ATRIAL FIBRILLATION [None]
  - CEREBRAL ATROPHY [None]
  - CONTUSION [None]
  - DILATATION VENTRICULAR [None]
  - HEPATIC NECROSIS [None]
  - HUMERUS FRACTURE [None]
  - LACERATION [None]
  - MYOCARDIAL FIBROSIS [None]
  - OSTEOPOROSIS [None]
  - PLEURAL EFFUSION [None]
  - PROSTATOMEGALY [None]
  - PULMONARY CONGESTION [None]
  - PULMONARY OEDEMA [None]
  - RENAL TUBULAR NECROSIS [None]
  - SUBDURAL HAEMATOMA [None]
  - VOMITING [None]
